FAERS Safety Report 4324765-2 (Version None)
Quarter: 2004Q1

REPORT INFORMATION
  Report Type: 
  Country: None (occurrence: None)
  Receive Date: 20040326
  Receipt Date: 20020903
  Transmission Date: 20041129
  Serious: Yes (Other)
  Sender: FDA-Public Use
  Company Number: US-GLAXOSMITHKLINE-A0379831A

PATIENT
  Age: 16 Year
  Sex: Male

DRUGS (2)
  1. PAXIL [Suspect]
     Indication: DEPRESSION
  2. EFFEXOR [Suspect]
     Indication: DEPRESSION

REACTIONS (7)
  - ABNORMAL DREAMS [None]
  - AGGRESSION [None]
  - AMNESIA [None]
  - DEPRESSION [None]
  - FEELING ABNORMAL [None]
  - HALLUCINATION [None]
  - SUICIDAL IDEATION [None]
